FAERS Safety Report 18158332 (Version 3)
Quarter: 2023Q2

REPORT INFORMATION
  Report Type: Spontaneous
  Country: US (occurrence: US)
  Receive Date: 20200817
  Receipt Date: 20230414
  Transmission Date: 20230722
  Serious: Yes (Other)
  Sender: FDA-Public Use
  Company Number: US-GILEAD-2020-0489760

PATIENT
  Age: 61 Year
  Sex: Male
  Weight: 120.2 kg

DRUGS (71)
  1. ATRIPLA [Suspect]
     Active Substance: EFAVIRENZ\EMTRICITABINE\TENOFOVIR DISOPROXIL FUMARATE
     Indication: HIV infection
     Dosage: UNK
     Route: 048
     Dates: start: 2007, end: 20140224
  2. ATRIPLA [Suspect]
     Active Substance: EFAVIRENZ\EMTRICITABINE\TENOFOVIR DISOPROXIL FUMARATE
     Dosage: UNK
     Route: 048
     Dates: start: 2007, end: 201404
  3. ATRIPLA [Suspect]
     Active Substance: EFAVIRENZ\EMTRICITABINE\TENOFOVIR DISOPROXIL FUMARATE
     Dosage: UNK
     Route: 048
     Dates: start: 20140424, end: 201710
  4. TRUVADA [Suspect]
     Active Substance: EMTRICITABINE\TENOFOVIR DISOPROXIL FUMARATE
     Indication: HIV infection
     Dosage: UNK
     Route: 048
     Dates: start: 2005
  5. GENVOYA [Concomitant]
     Active Substance: COBICISTAT\ELVITEGRAVIR\EMTRICITABINE\TENOFOVIR ALAFENAMIDE FUMARATE
  6. FERROUS FUMARATE [Concomitant]
     Active Substance: FERROUS FUMARATE
  7. AFLURIA NOS [Concomitant]
     Active Substance: INFLUENZA VIRUS VACCINE TRIVALENT TYPE A+B AFLURIA
  8. AMOXICILLIN\CLAVULANIC ACID [Concomitant]
     Active Substance: AMOXICILLIN\CLAVULANIC ACID
  9. ANDROGEL [Concomitant]
     Active Substance: TESTOSTERONE
  10. ATORVASTATIN CALCIUM [Concomitant]
     Active Substance: ATORVASTATIN CALCIUM
  11. AZELASTINE [Concomitant]
     Active Substance: AZELASTINE
  12. CELECOXIB [Concomitant]
     Active Substance: CELECOXIB
  13. CEPHALEXIN [Concomitant]
     Active Substance: CEPHALEXIN
  14. CHLORHEXIDINE [Concomitant]
     Active Substance: CHLORHEXIDINE
  15. CIPROFLOXACIN [Concomitant]
     Active Substance: CIPROFLOXACIN
  16. CLARITHROMYCIN [Concomitant]
     Active Substance: CLARITHROMYCIN
  17. CLOBETASOL [Concomitant]
     Active Substance: CLOBETASOL
  18. CYCLOBENZAPRINE [Concomitant]
     Active Substance: CYCLOBENZAPRINE
  19. DICYCLOMINE HYDROCHLORIDE [Concomitant]
     Active Substance: DICYCLOMINE HYDROCHLORIDE
  20. DIFLUNISAL [Concomitant]
     Active Substance: DIFLUNISAL
  21. DOXYCYCLINE HYCLATE [Concomitant]
     Active Substance: DOXYCYCLINE HYCLATE
  22. ECONAZOLE NITRATE [Concomitant]
     Active Substance: ECONAZOLE NITRATE
  23. FERROUS SULFATE [Concomitant]
     Active Substance: FERROUS SULFATE
  24. FINASTERIDE [Concomitant]
     Active Substance: FINASTERIDE
  25. FLUCONAZOLE [Concomitant]
     Active Substance: FLUCONAZOLE
  26. GABAPENTIN [Concomitant]
     Active Substance: GABAPENTIN
  27. GLIPIZIDE [Concomitant]
     Active Substance: GLIPIZIDE
  28. HUMALOG [Concomitant]
     Active Substance: INSULIN LISPRO
  29. ACETAMINOPHEN\HYDROCODONE [Concomitant]
     Active Substance: ACETAMINOPHEN\HYDROCODONE
  30. JANUVIA [Concomitant]
     Active Substance: SITAGLIPTIN PHOSPHATE
  31. LANTUS [Concomitant]
     Active Substance: INSULIN GLARGINE
  32. LEVOFLOXACIN [Concomitant]
     Active Substance: LEVOFLOXACIN
  33. LISINOPRIL [Concomitant]
     Active Substance: LISINOPRIL
  34. LORAZEPAM [Concomitant]
     Active Substance: LORAZEPAM
  35. LOSARTAN [Concomitant]
     Active Substance: LOSARTAN
  36. LYRICA [Concomitant]
     Active Substance: PREGABALIN
  37. MELOXICAM [Concomitant]
     Active Substance: MELOXICAM
  38. METFORMIN [Concomitant]
     Active Substance: METFORMIN HYDROCHLORIDE
  39. METHYLPREDNISOLONE [Concomitant]
     Active Substance: METHYLPREDNISOLONE
  40. NAPROXEN [Concomitant]
     Active Substance: NAPROXEN
  41. NOVOLOG [Concomitant]
     Active Substance: INSULIN ASPART
  42. OMEPRAZOLE [Concomitant]
     Active Substance: OMEPRAZOLE
  43. ONDANSETRON [Concomitant]
     Active Substance: ONDANSETRON
  44. OXYBUTYNIN [Concomitant]
     Active Substance: OXYBUTYNIN
  45. OXYCODONE [Concomitant]
     Active Substance: OXYCODONE
  46. OZEMPIC [Concomitant]
     Active Substance: SEMAGLUTIDE
  47. PHENETICILLIN [Concomitant]
     Active Substance: PHENETICILLIN
  48. SERTRALINE [Concomitant]
     Active Substance: SERTRALINE HYDROCHLORIDE
  49. SIMVASTATIN [Concomitant]
     Active Substance: SIMVASTATIN
  50. SULFAMETHOXAZOLE [Concomitant]
     Active Substance: SULFAMETHOXAZOLE
  51. TAMSULOSIN [Concomitant]
     Active Substance: TAMSULOSIN
  52. TERBINAFINE [Concomitant]
     Active Substance: TERBINAFINE
  53. TESTIM [Concomitant]
     Active Substance: TESTOSTERONE
  54. TESTOSTERONE [Concomitant]
     Active Substance: TESTOSTERONE
  55. TRESIBA [Concomitant]
     Active Substance: INSULIN DEGLUDEC
  56. VICTOZA [Concomitant]
     Active Substance: LIRAGLUTIDE
  57. VITAMIN D2 [Concomitant]
     Active Substance: ERGOCALCIFEROL
  58. TRESIBA [Concomitant]
     Active Substance: INSULIN DEGLUDEC
  59. SULFAMETHOXAZOLE AND TRIMETHOPRIM [Concomitant]
     Active Substance: SULFAMETHOXAZOLE\TRIMETHOPRIM
  60. TRAMADOL [Concomitant]
     Active Substance: TRAMADOL
  61. ASCORBIC ACID\POLYETHYLENE GLYCOL 4000\POTASSIUM CL\SOD ASCORBATE\SOD [Concomitant]
     Active Substance: ASCORBIC ACID\POLYETHYLENE GLYCOL 4000\POTASSIUM CL\SOD ASCORBATE\SOD CL\SOD SULFATE
  62. NYSTATIN [Concomitant]
     Active Substance: NYSTATIN
  63. OXYCODONE AND ACETAMINOPHEN [Concomitant]
     Active Substance: ACETAMINOPHEN\OXYCODONE HYDROCHLORIDE
  64. OXYCODONE HYDROCHLORIDE [Concomitant]
     Active Substance: OXYCODONE HYDROCHLORIDE
  65. PHENAZOPYRIDINE [Concomitant]
     Active Substance: PHENAZOPYRIDINE
  66. AZELASTINE [Concomitant]
     Active Substance: AZELASTINE
  67. CHERATUSSIN AC [Concomitant]
     Active Substance: CODEINE PHOSPHATE\GUAIFENESIN
  68. DEXILANT [Concomitant]
     Active Substance: DEXLANSOPRAZOLE
  69. FLUVIRINE [Concomitant]
  70. HYDROMORPHONE [Concomitant]
     Active Substance: HYDROMORPHONE
  71. KETOCONAZOLE [Concomitant]
     Active Substance: KETOCONAZOLE

REACTIONS (13)
  - Chronic kidney disease [Not Recovered/Not Resolved]
  - Osteoporosis [Not Recovered/Not Resolved]
  - Fracture [Not Recovered/Not Resolved]
  - Anhedonia [Unknown]
  - Emotional distress [Unknown]
  - Anxiety [Unknown]
  - Pain [Unknown]
  - Bone demineralisation [Not Recovered/Not Resolved]
  - Bone disorder [Unknown]
  - Hyperlipidaemia [Not Recovered/Not Resolved]
  - Depression [Unknown]
  - Vitamin D deficiency [Unknown]
  - Oesophageal motility disorder [Unknown]

NARRATIVE: CASE EVENT DATE: 20120601
